FAERS Safety Report 13597900 (Version 1)
Quarter: 2017Q2

REPORT INFORMATION
  Report Type: Spontaneous
  Country: GR (occurrence: GR)
  Receive Date: 20170531
  Receipt Date: 20170531
  Transmission Date: 20170830
  Serious: Yes (Other)
  Sender: FDA-Public Use
  Company Number: GR-BAYER-2017-070595

PATIENT
  Age: 86 Year
  Sex: Male

DRUGS (2)
  1. NEXAVAR [Suspect]
     Active Substance: SORAFENIB
     Indication: HEPATOCELLULAR CARCINOMA
     Dosage: DAILY DOSE 400 MG
     Dates: start: 201512, end: 201606
  2. NEXAVAR [Suspect]
     Active Substance: SORAFENIB
     Indication: HEPATOCELLULAR CARCINOMA
     Dosage: 400 MG, BID
     Dates: start: 201606

REACTIONS (4)
  - Alpha 1 foetoprotein increased [None]
  - Alpha 1 foetoprotein increased [None]
  - Hepatocellular carcinoma [None]
  - Diarrhoea [None]

NARRATIVE: CASE EVENT DATE: 20160613
